FAERS Safety Report 18649387 (Version 1)
Quarter: 2020Q4

REPORT INFORMATION
  Report Type: Spontaneous
  Country: US (occurrence: US)
  Receive Date: 20201222
  Receipt Date: 20201222
  Transmission Date: 20210114
  Serious: Yes (Other)
  Sender: FDA-Public Use
  Company Number: US-SUPERNUS PHARMACEUTICALS, INC.-2020SUP00806

PATIENT
  Age: 50 Year
  Sex: Female
  Weight: 95.24 kg

DRUGS (36)
  1. FENTANYL TRANSDERMAL SYSTEM [Suspect]
     Active Substance: FENTANYL
     Dosage: 225 ?G, EVERY 72 HOURS
  2. STIMATE [Concomitant]
     Active Substance: DESMOPRESSIN ACETATE
     Dosage: UNK
  3. MYRBETRIQ [Concomitant]
     Active Substance: MIRABEGRON
     Dosage: 50 MG
  4. NYSTATIN POWDER [Concomitant]
     Active Substance: NYSTATIN
     Dosage: UNDER HER BREASTS
     Route: 061
  5. FOCALIN XR [Concomitant]
     Active Substance: DEXMETHYLPHENIDATE HYDROCHLORIDE
     Dosage: 80 MG, 1X/DAY
  6. METHADONE [Suspect]
     Active Substance: METHADONE HYDROCHLORIDE
     Dosage: UNK
  7. FETZIMA [Concomitant]
     Active Substance: LEVOMILNACIPRAN HYDROCHLORIDE
     Dosage: 120 MG
  8. LYSTEDA [Concomitant]
     Active Substance: TRANEXAMIC ACID
     Dosage: 2 DOSAGE UNITS
  9. NYSTATIN;TRIAMCINOLONE ACETONIDE CREAM [Concomitant]
     Dosage: UNDER HER BREASTS
     Route: 061
  10. METHADONE [Suspect]
     Active Substance: METHADONE HYDROCHLORIDE
     Dosage: UNK
  11. AJOVY [Suspect]
     Active Substance: FREMANEZUMAB-VFRM
     Indication: HEADACHE
     Dosage: UNK
  12. VALIUM [Concomitant]
     Active Substance: DIAZEPAM
     Dosage: 30 MG, 1X/DAY
  13. VITAMIN D3 [Concomitant]
     Active Substance: CHOLECALCIFEROL
     Dosage: 5000 IU
  14. ROPINIROLE HYDROCHLORIDE ER [Concomitant]
     Dosage: 8 MG, 3X/DAY
  15. SYNTRHOID [Concomitant]
     Dosage: 75 ?G
  16. TROKENDI XR [Suspect]
     Active Substance: TOPIRAMATE
     Indication: COMPLEX REGIONAL PAIN SYNDROME
     Dosage: UNK
  17. TROKENDI XR [Suspect]
     Active Substance: TOPIRAMATE
     Indication: PAIN
     Dosage: 200 MG, 1X/DAY WITH 100 MG
  18. METHADONE [Suspect]
     Active Substance: METHADONE HYDROCHLORIDE
     Dosage: 120 MG, 1X/DAY
  19. VISTARIL [Concomitant]
     Active Substance: HYDROXYZINE PAMOATE
     Dosage: 100 MG
  20. ABILIFY [Concomitant]
     Active Substance: ARIPIPRAZOLE
     Dosage: 30 MG
  21. MODAFINIL. [Concomitant]
     Active Substance: MODAFINIL
     Dosage: 400 MG
  22. CARAFATE [Suspect]
     Active Substance: SUCRALFATE
     Dosage: UNK
  23. CITRACAL [Concomitant]
     Active Substance: CALCIUM CITRATE
     Dosage: 2 DOSAGE UNITS, 1X/DAY
  24. PANTOPRAZOLE [Concomitant]
     Active Substance: PANTOPRAZOLE
     Dosage: 20 MG, 3X/DAY
  25. TROKENDI XR [Suspect]
     Active Substance: TOPIRAMATE
     Indication: PAIN
     Dosage: 100 MG, 1X/DAY WIH 200 MG
  26. BOTOX [Concomitant]
     Active Substance: ONABOTULINUMTOXINA
     Dosage: UNK
  27. LIDOCAINE. [Concomitant]
     Active Substance: LIDOCAINE
     Dosage: UNK
  28. CENTRUM OVER 50 [Concomitant]
     Dosage: UNK
  29. LYSTEDA [Concomitant]
     Active Substance: TRANEXAMIC ACID
     Dosage: 6 DOSAGE UNITS, 1X/DAY
  30. TROKENDI XR [Suspect]
     Active Substance: TOPIRAMATE
     Indication: COMPLEX REGIONAL PAIN SYNDROME
     Dosage: UNK
  31. UBRELVY [Suspect]
     Active Substance: UBROGEPANT
     Indication: HEADACHE
     Dosage: UNK
  32. FIORINAL [Suspect]
     Active Substance: ASPIRIN\BUTALBITAL\CAFFEINE
     Indication: HEADACHE
     Dosage: UNK
  33. CYTOMEL [Concomitant]
     Active Substance: LIOTHYRONINE SODIUM
     Dosage: 5 ?G
  34. OZEMPIC [Concomitant]
     Active Substance: SEMAGLUTIDE
     Dosage: 0.5 MG, 1X/WEEK
  35. MEDICAL MARIJUANA [Concomitant]
     Active Substance: CANNABIS SATIVA SUBSP. INDICA TOP
     Dosage: UNK
  36. PRISTIQ EXTENDED-RELEASE [Concomitant]
     Active Substance: DESVENLAFAXINE SUCCINATE
     Dosage: 100 MG

REACTIONS (28)
  - Product prescribing error [Not Recovered/Not Resolved]
  - Hyperhidrosis [Not Recovered/Not Resolved]
  - Feeding disorder [Recovered/Resolved]
  - Electrocardiogram T wave inversion [Not Recovered/Not Resolved]
  - Off label use [Recovered/Resolved]
  - Vomiting [Not Recovered/Not Resolved]
  - Dehydration [Not Recovered/Not Resolved]
  - Abnormal behaviour [Unknown]
  - Tremor [Not Recovered/Not Resolved]
  - Hypertension [Not Recovered/Not Resolved]
  - Unevaluable event [Not Recovered/Not Resolved]
  - Illness [Not Recovered/Not Resolved]
  - Panic reaction [Unknown]
  - Pain [Not Recovered/Not Resolved]
  - Heart rate increased [Not Recovered/Not Resolved]
  - Gastrooesophageal reflux disease [Not Recovered/Not Resolved]
  - Abnormal dreams [Unknown]
  - Decreased appetite [Not Recovered/Not Resolved]
  - Retching [Not Recovered/Not Resolved]
  - Withdrawal syndrome [Not Recovered/Not Resolved]
  - Anxiety [Not Recovered/Not Resolved]
  - Duodenogastric reflux [Recovered/Resolved]
  - Intentional product misuse [Recovered/Resolved]
  - Feeling of body temperature change [Not Recovered/Not Resolved]
  - Cold sweat [Not Recovered/Not Resolved]
  - Migraine [Not Recovered/Not Resolved]
  - Drug withdrawal headache [Not Recovered/Not Resolved]
  - Weight decreased [Not Recovered/Not Resolved]

NARRATIVE: CASE EVENT DATE: 2020
